FAERS Safety Report 10753846 (Version 1)
Quarter: 2015Q1

REPORT INFORMATION
  Report Type: Spontaneous
  Country: US (occurrence: None)
  Receive Date: 20150129
  Receipt Date: 20150129
  Transmission Date: 20150721
  Serious: Yes (Other)
  Sender: FDA-Public Use
  Company Number: 2015-US-000902

PATIENT
  Sex: Female
  Weight: 48.5 kg

DRUGS (22)
  1. GILDESS FE (ETHINYLESTRADIOL, FERROUS FUMARATE, NORETHISTERONE ACETATE) [Concomitant]
  2. XYREM [Suspect]
     Active Substance: SODIUM OXYBATE
     Indication: CATAPLEXY
     Route: 048
     Dates: start: 200811, end: 2008
  3. HALOPERIDOL (HALOPERIDOL LACTATE) [Concomitant]
  4. LOESTRIN FE 1/20 (ETHINYLESTRADIOL, FERROUS FUMARATE, NORETHISTERONE ACETATE) [Concomitant]
  5. ONDANSETRON HCL (ONDANSETRON HYDROCHLORIDE) [Concomitant]
     Active Substance: ONDANSETRON HYDROCHLORIDE
  6. CEPHALEXIN (CEFALEXIN) [Concomitant]
     Active Substance: CEPHALEXIN
  7. XYREM [Suspect]
     Active Substance: SODIUM OXYBATE
     Indication: NARCOLEPSY
     Route: 048
     Dates: start: 200811, end: 2008
  8. XYREM [Suspect]
     Active Substance: SODIUM OXYBATE
     Indication: HALLUCINATION
     Route: 048
     Dates: start: 200811, end: 2008
  9. XYREM [Suspect]
     Active Substance: SODIUM OXYBATE
     Indication: SLEEP DISORDER
     Route: 048
     Dates: start: 200811, end: 2008
  10. VYVANSE [Suspect]
     Active Substance: LISDEXAMFETAMINE DIMESYLATE
     Indication: PRODUCT USED FOR UNKNOWN INDICATION
     Dates: start: 20120302, end: 20120302
  11. ATENOLOL. [Concomitant]
     Active Substance: ATENOLOL
  12. XANAX [Concomitant]
     Active Substance: ALPRAZOLAM
  13. CYCLESSA (DESOGESTREL, ETHINYLESTRADIOL) [Concomitant]
  14. LAMOTRIGINE. [Concomitant]
     Active Substance: LAMOTRIGINE
  15. ADDERALL XR (AMFETAMINE ASPARTATE, AMFETAMINE SULFATE, DEXAMFETAMINE SACCHARATE, DEXAMFETAMINE SULFATE) [Concomitant]
  16. CYMBALTA [Concomitant]
     Active Substance: DULOXETINE HYDROCHLORIDE
  17. VESICARE [Concomitant]
     Active Substance: SOLIFENACIN SUCCINATE
  18. DIAZEPAM. [Concomitant]
     Active Substance: DIAZEPAM
  19. PROVIGIL [Concomitant]
     Active Substance: MODAFINIL
  20. FLUTICASONE PROPIONATE. [Concomitant]
     Active Substance: FLUTICASONE PROPIONATE
  21. CELEBREX [Concomitant]
     Active Substance: CELECOXIB
  22. GLYCOPYRROLATE (GLYCOPYRRONIUM BROMIDE) [Concomitant]

REACTIONS (5)
  - Wound infection staphylococcal [None]
  - Bladder neck suspension [None]
  - Pelvic floor repair [None]
  - Anxiety [None]
  - Foot fracture [None]
